FAERS Safety Report 17833744 (Version 2)
Quarter: 2020Q2

REPORT INFORMATION
  Report Type: Report from Study
  Country: KR (occurrence: KR)
  Receive Date: 20200528
  Receipt Date: 20200609
  Transmission Date: 20200714
  Serious: Yes (Hospitalization)
  Sender: FDA-Public Use
  Company Number: KR-ROCHE-2416417

PATIENT
  Age: 68 Year
  Sex: Female
  Weight: 39 kg

DRUGS (11)
  1. ATEZOLIZUMAB. [Suspect]
     Active Substance: ATEZOLIZUMAB
     Route: 042
     Dates: start: 20190806
  2. PENIRAMIN [Concomitant]
     Route: 065
     Dates: start: 20190716, end: 20190716
  3. PENIRAMIN [Concomitant]
     Route: 065
     Dates: start: 20190806, end: 20190806
  4. PENIRAMIN [Concomitant]
     Route: 065
     Dates: start: 20190827, end: 20190827
  5. ABSTRAL [Concomitant]
     Active Substance: FENTANYL CITRATE
     Indication: CHEST PAIN
     Route: 065
     Dates: start: 20190409
  6. ATEZOLIZUMAB. [Suspect]
     Active Substance: ATEZOLIZUMAB
     Route: 042
     Dates: start: 20190827
  7. ERDOS [Concomitant]
     Active Substance: ERDOSTEINE
     Indication: PRODUCTIVE COUGH
     Route: 065
     Dates: start: 20190305
  8. ATEZOLIZUMAB. [Suspect]
     Active Substance: ATEZOLIZUMAB
     Indication: NON-SMALL CELL LUNG CANCER
     Route: 042
     Dates: start: 20190716
  9. LAMINA-G [Concomitant]
     Indication: DYSPEPSIA
     Route: 065
     Dates: start: 20190409
  10. TARGIN [Concomitant]
     Active Substance: NALOXONE HYDROCHLORIDE\OXYCODONE HYDROCHLORIDE
     Indication: CHEST PAIN
     Dosage: 40/20 MG
     Route: 065
     Dates: start: 20190312
  11. MAGMIL [Concomitant]
     Active Substance: MAGNESIUM HYDROXIDE
     Indication: CONSTIPATION
     Route: 065
     Dates: start: 20190331

REACTIONS (2)
  - Syncope [Recovered/Resolved]
  - Hyperthyroidism [Not Recovered/Not Resolved]

NARRATIVE: CASE EVENT DATE: 20190827
